FAERS Safety Report 19468786 (Version 17)
Quarter: 2024Q1

REPORT INFORMATION
  Report Type: Spontaneous
  Country: US (occurrence: US)
  Receive Date: 20210628
  Receipt Date: 20240115
  Transmission Date: 20240410
  Serious: No
  Sender: FDA-Public Use
  Company Number: US-PFIZER INC-2021600531

PATIENT
  Age: 76 Year
  Sex: Female
  Weight: 43.1 kg

DRUGS (6)
  1. IBRANCE [Suspect]
     Active Substance: PALBOCICLIB
     Indication: Breast cancer
     Dosage: 100 MG, CYCLIC  (ONCE DAILY FOR 3 WEEKS, 1 WEEK OFF)
     Route: 048
     Dates: start: 202005
  2. ATOVAN [Concomitant]
     Dosage: UNK
     Dates: start: 2000
  3. ATOVAN [Concomitant]
     Dosage: UNK
     Dates: start: 2020
  4. GABAPENTIN [Concomitant]
     Active Substance: GABAPENTIN
     Dosage: UNK
     Dates: start: 2020
  5. MILK OF MAGNESIA [Concomitant]
     Active Substance: MAGNESIUM HYDROXIDE
     Indication: Laxative supportive care
     Dosage: UNK , 1X/DAY (EVERY NIGHT)
     Dates: start: 2020
  6. MILK OF MAGNESIA [Concomitant]
     Active Substance: MAGNESIUM HYDROXIDE
     Dosage: UNK, AS NEEDED

REACTIONS (6)
  - Neoplasm progression [Not Recovered/Not Resolved]
  - Confusional state [Recovered/Resolved]
  - Panic reaction [Unknown]
  - Nervousness [Recovered/Resolved]
  - Paranoia [Unknown]
  - Weight decreased [Unknown]

NARRATIVE: CASE EVENT DATE: 20200501
